FAERS Safety Report 4460515-7 (Version None)
Quarter: 2004Q3

REPORT INFORMATION
  Report Type: 
  Country: None (occurrence: None)
  Receive Date: 20040923
  Receipt Date: 20040915
  Transmission Date: 20050211
  Serious: Yes (Hospitalization)
  Sender: FDA-Public Use
  Company Number: 2004CG01849

PATIENT
  Sex: Male

DRUGS (1)
  1. NEXIUM [Suspect]

REACTIONS (2)
  - HAEMORRHAGIC DISORDER [None]
  - THROMBOCYTOPENIA [None]
